FAERS Safety Report 8575912-8 (Version None)
Quarter: 2012Q3

REPORT INFORMATION
  Report Type: 
  Country: None (occurrence: None)
  Receive Date: 20120807
  Receipt Date: 20120727
  Transmission Date: 20120928
  Serious: Yes (Hospitalization)
  Sender: FDA-Public Use
  Company Number: JP-EISAI INC-E7389-02092-CLI-JP

PATIENT
  Sex: Female
  Weight: 50 kg

DRUGS (14)
  1. MUCOSTA [Concomitant]
     Route: 048
  2. GRANISETRON [Concomitant]
     Indication: PROPHYLAXIS
     Route: 041
  3. ZOMETA [Concomitant]
     Route: 041
  4. HALAVEN [Suspect]
     Indication: METASTASES TO LYMPH NODES
  5. FAMOTIDINE [Concomitant]
     Route: 048
  6. HALAVEN [Suspect]
     Indication: BREAST CANCER RECURRENT
     Route: 041
     Dates: start: 20111102
  7. STROCAIN [Concomitant]
     Route: 048
  8. DECADRON PHOSPHATE [Concomitant]
     Indication: PROPHYLAXIS
     Route: 041
  9. LANSOPRAZOLE [Concomitant]
     Route: 048
  10. HALAVEN [Suspect]
     Indication: METASTASES TO BONE
  11. LOXONIN [Concomitant]
     Route: 048
  12. HALAVEN [Suspect]
     Indication: METASTASES TO LUNG
  13. HALAVEN [Suspect]
     Indication: METASTASES TO LIVER
  14. TATHION [Concomitant]
     Indication: PROPHYLAXIS
     Route: 048

REACTIONS (4)
  - FEBRILE NEUTROPENIA [None]
  - LEUKOPENIA [None]
  - ASPARTATE AMINOTRANSFERASE INCREASED [None]
  - BLOOD ALKALINE PHOSPHATASE INCREASED [None]
